FAERS Safety Report 5834830-6 (Version None)
Quarter: 2008Q3

REPORT INFORMATION
  Report Type: 
  Country: None (occurrence: None)
  Receive Date: 20080805
  Receipt Date: 20080725
  Transmission Date: 20090109
  Serious: Yes (Hospitalization, Other)
  Sender: FDA-Public Use
  Company Number: US-ELI_LILLY_AND_COMPANY-USA050393344

PATIENT
  Sex: Female
  Weight: 105.46 kg

DRUGS (4)
  1. HUMALOG [Suspect]
     Indication: DIABETES MELLITUS
     Dosage: 80 U, DAILY (1/D)
     Dates: start: 20010101
  2. HUMULIN R [Suspect]
     Indication: DIABETES MELLITUS
     Dosage: UNK, UNKNOWN
  3. FUROSEMIDE [Concomitant]
     Indication: OEDEMA
     Dosage: UNK, UNKNOWN
     Dates: start: 20020101
  4. LANOXIN [Concomitant]
     Indication: ARRHYTHMIA
     Dosage: UNK, UNKNOWN
     Dates: start: 19850101

REACTIONS (6)
  - ANGINA PECTORIS [None]
  - ARTERIOVENOUS GRAFT SITE INFECTION [None]
  - BLOOD GLUCOSE INCREASED [None]
  - DYSPNOEA [None]
  - OEDEMA PERIPHERAL [None]
  - WEIGHT DECREASED [None]
